FAERS Safety Report 16257394 (Version 3)
Quarter: 2019Q4

REPORT INFORMATION
  Report Type: Spontaneous
  Country: BR (occurrence: BR)
  Receive Date: 20190430
  Receipt Date: 20191022
  Transmission Date: 20200122
  Serious: Yes (Hospitalization)
  Sender: FDA-Public Use
  Company Number: BR-BIOMARINAP-BR-2019-123354

PATIENT

DRUGS (2)
  1. ALENIA [Concomitant]
     Indication: ASTHMA
  2. VIMIZIM [Suspect]
     Active Substance: ELOSULFASE ALFA
     Indication: MUCOPOLYSACCHARIDOSIS IV
     Dosage: UNK, QW
     Route: 042
     Dates: start: 201509

REACTIONS (5)
  - Respiratory distress [Unknown]
  - H1N1 influenza [Recovering/Resolving]
  - Pneumonia [Unknown]
  - Tracheal disorder [Unknown]
  - Aortic valve thickening [Unknown]
